FAERS Safety Report 6075687-0 (Version None)
Quarter: 2009Q1

REPORT INFORMATION
  Report Type: 
  Country: None (occurrence: None)
  Receive Date: 20090212
  Receipt Date: 20090203
  Transmission Date: 20090719
  Serious: Yes (Other)
  Sender: FDA-Public Use
  Company Number: JP-MERCK-0901USA04428

PATIENT
  Age: 45 Year
  Sex: Male

DRUGS (3)
  1. PEPCID [Suspect]
     Route: 042
     Dates: start: 20090120, end: 20090123
  2. PRIMPERAN TAB [Suspect]
     Route: 042
     Dates: start: 20090120, end: 20090123
  3. FIRSTCIN [Suspect]
     Route: 042
     Dates: start: 20090119, end: 20090122

REACTIONS (1)
  - RHABDOMYOLYSIS [None]
